FAERS Safety Report 7209065-5 (Version None)
Quarter: 2010Q4

REPORT INFORMATION
  Report Type: 
  Country: None (occurrence: None)
  Receive Date: 20101222
  Receipt Date: 20101213
  Transmission Date: 20110411
  Serious: Yes (Other)
  Sender: FDA-Public Use
  Company Number: 2010EU005891

PATIENT
  Age: 5 Year
  Sex: Female
  Weight: 17 kg

DRUGS (1)
  1. PROTOPIC [Suspect]
     Indication: SKIN IRRITATION
     Dosage: 0.03%, PRN, TOPICAL
     Route: 061

REACTIONS (5)
  - ACCIDENTAL EXPOSURE [None]
  - DIARRHOEA [None]
  - INFLUENZA LIKE ILLNESS [None]
  - OROPHARYNGEAL PAIN [None]
  - PYREXIA [None]
